FAERS Safety Report 8212316-1 (Version None)
Quarter: 2012Q1

REPORT INFORMATION
  Report Type: 
  Country: None (occurrence: None)
  Receive Date: 20120315
  Receipt Date: 20120309
  Transmission Date: 20120608
  Serious: Yes (Other)
  Sender: FDA-Public Use
  Company Number: US-BAYER-2012-024257

PATIENT
  Sex: Female

DRUGS (1)
  1. MIRENA [Suspect]
     Dosage: 20 ?G/D, CONT
     Dates: start: 20080724

REACTIONS (5)
  - DEVICE DISLOCATION [None]
  - PAIN [None]
  - INFECTION [None]
  - GENITAL HAEMORRHAGE [None]
  - ABDOMINAL PAIN [None]
